FAERS Safety Report 6339490-6 (Version None)
Quarter: 2009Q3

REPORT INFORMATION
  Report Type: 
  Country: None (occurrence: None)
  Receive Date: 20090903
  Receipt Date: 20090901
  Transmission Date: 20100115
  Serious: Yes (Hospitalization)
  Sender: FDA-Public Use
  Company Number: US-ELI_LILLY_AND_COMPANY-US200909000255

PATIENT
  Sex: Female

DRUGS (14)
  1. HUMALOG [Suspect]
     Route: 058
  2. HUMALOG [Suspect]
     Dosage: UNK, UNKNOWN
  3. HUMULIN N [Suspect]
  4. HUMULIN R [Suspect]
  5. HUMULIN R [Suspect]
  6. NOVOLOG [Concomitant]
  7. SINULIN [Concomitant]
  8. SYNTHROID [Concomitant]
  9. THYROID TAB [Concomitant]
  10. HYDROCODONE [Concomitant]
  11. K-DUR [Concomitant]
  12. LASIX [Concomitant]
  13. VITAMIN D [Concomitant]
  14. ORAL ANTIDIABETICS [Concomitant]

REACTIONS (5)
  - DRUG INEFFECTIVE [None]
  - FIBROMYALGIA [None]
  - HYPERGLYCAEMIA [None]
  - INJECTION SITE NODULE [None]
  - URTICARIA [None]
